FAERS Safety Report 19769838 (Version 1)
Quarter: 2021Q3

REPORT INFORMATION
  Report Type: Spontaneous
  Country: TW (occurrence: TW)
  Receive Date: 20210831
  Receipt Date: 20210831
  Transmission Date: 20211014
  Serious: Yes (Hospitalization)
  Sender: FDA-Public Use
  Company Number: TW-MYLANLABS-2021M1057434

PATIENT
  Age: 62 Year
  Sex: Female

DRUGS (12)
  1. LEUCOVORIN CALCIUM. [Concomitant]
     Active Substance: LEUCOVORIN CALCIUM
     Indication: METASTASES TO LIVER
  2. FLUOROURACIL. [Concomitant]
     Active Substance: FLUOROURACIL
     Indication: METASTASES TO LIVER
  3. BEVACIZUMAB. [Concomitant]
     Active Substance: BEVACIZUMAB
     Indication: RECTOSIGMOID CANCER
     Dosage: AVASTIN?FOLFIRI CHEMOTHERAPY
     Route: 065
     Dates: start: 201504
  4. IRINOTECAN [Suspect]
     Active Substance: IRINOTECAN
     Indication: METASTASES TO LIVER
  5. OXALIPLATIN. [Suspect]
     Active Substance: OXALIPLATIN
     Indication: METASTASES TO LIVER
  6. BEVACIZUMAB. [Concomitant]
     Active Substance: BEVACIZUMAB
     Indication: METASTASES TO LIVER
  7. LEUCOVORIN                         /00566701/ [Concomitant]
     Active Substance: LEUCOVORIN
     Indication: METASTASES TO LIVER
  8. OXALIPLATIN. [Suspect]
     Active Substance: OXALIPLATIN
     Indication: RECTOSIGMOID CANCER
     Dosage: FOLFOX CHEMOTHERAPY
     Route: 065
     Dates: start: 201504
  9. LEUCOVORIN                         /00566701/ [Concomitant]
     Active Substance: LEUCOVORIN
     Indication: RECTOSIGMOID CANCER
     Dosage: FOLFOX CHEMOTHERAPY
     Route: 065
     Dates: start: 201504
  10. IRINOTECAN [Suspect]
     Active Substance: IRINOTECAN
     Indication: RECTOSIGMOID CANCER
     Dosage: AVASTIN?FOLFIRI CHEMOTHERAPY
     Route: 065
     Dates: start: 201504
  11. LEUCOVORIN CALCIUM. [Concomitant]
     Active Substance: LEUCOVORIN CALCIUM
     Indication: RECTOSIGMOID CANCER
     Dosage: AVASTIN?FOLFIRI CHEMOTHERAPY
     Route: 065
     Dates: start: 201504
  12. FLUOROURACIL. [Concomitant]
     Active Substance: FLUOROURACIL
     Indication: RECTOSIGMOID CANCER
     Dosage: AVASTIN?FOLFIRI AND FOLFOX CHEMOTHERAPY
     Route: 065
     Dates: start: 201504

REACTIONS (1)
  - Metastases to bone [Unknown]

NARRATIVE: CASE EVENT DATE: 2018
